FAERS Safety Report 4602157-6 (Version None)
Quarter: 2005Q2

REPORT INFORMATION
  Report Type: 
  Country: None (occurrence: None)
  Receive Date: 20050215
  Receipt Date: 20040916
  Transmission Date: 20051028
  Serious: Yes (Hospitalization)
  Sender: FDA-Public Use
  Company Number: MC200400345

PATIENT
  Age: 57 Year
  Sex: Male
  Weight: 105 kg

DRUGS (4)
  1. ANGIOMAX [Suspect]
     Indication: ANTICOAGULANT THERAPY
     Dosage: 15.8 ML, BOLUS, IV BOLUS
     Route: 040
     Dates: start: 20040803, end: 20040803
  2. ANGIOMAX [Suspect]
     Dosage: 37 ML/HR, INTRAVENOUS
     Route: 042
     Dates: start: 20040803, end: 20040803
  3. ANGIOMAX [Suspect]
     Dosage: 10.5 ML, BOLUS, IV BOLUS
     Route: 040
     Dates: start: 20040803, end: 20040803
  4. ANGIOMAX [Suspect]
     Dosage: 32 ML/HR, INTRAVENOUS
     Route: 042
     Dates: start: 20040803, end: 20040803

REACTIONS (1)
  - CORONARY ARTERY THROMBOSIS [None]
